FAERS Safety Report 10877028 (Version 1)
Quarter: 2015Q1

REPORT INFORMATION
  Report Type: Spontaneous
  Country: ES (occurrence: ES)
  Receive Date: 20150302
  Receipt Date: 20150302
  Transmission Date: 20150721
  Serious: Yes (Congenital Anomaly)
  Sender: FDA-Public Use
  Company Number: ES-BIAL, PORTELA + CA S.A.-BIAL-02828

PATIENT
  Sex: Male

DRUGS (1)
  1. ZEBINIX (ESLICARBAZEPINE ACETATE) [Suspect]
     Active Substance: ESLICARBAZEPINE ACETATE
     Indication: PARTIAL SEIZURES
     Dosage: 1600 MG, UNK
     Route: 064
     Dates: start: 2014, end: 20150217

REACTIONS (1)
  - Congenital knee dislocation [Not Recovered/Not Resolved]

NARRATIVE: CASE EVENT DATE: 201502
